FAERS Safety Report 8424708-6 (Version None)
Quarter: 2012Q2

REPORT INFORMATION
  Report Type: 
  Country: None (occurrence: None)
  Receive Date: 20120611
  Receipt Date: 20120606
  Transmission Date: 20120825
  Serious: Yes (Hospitalization, Other)
  Sender: FDA-Public Use
  Company Number: US-BIOGENIDEC-2012BI012868

PATIENT
  Age: 48 Year
  Sex: Female

DRUGS (3)
  1. AVONEX [Suspect]
     Indication: MULTIPLE SCLEROSIS
     Route: 030
     Dates: start: 20090416, end: 20100204
  2. ANTI-ANTIETY MEDICATION NOS [Concomitant]
  3. AVONEX [Suspect]
     Route: 030
     Dates: start: 20100713, end: 20120501

REACTIONS (5)
  - DISEASE PROGRESSION [None]
  - MULTIPLE SCLEROSIS RELAPSE [None]
  - STRESS [None]
  - SECONDARY PROGRESSIVE MULTIPLE SCLEROSIS [None]
  - SUICIDE ATTEMPT [None]
